FAERS Safety Report 18292131 (Version 1)
Quarter: 2020Q3

REPORT INFORMATION
  Report Type: Other
  Country: US (occurrence: US)
  Receive Date: 20200922
  Receipt Date: 20200922
  Transmission Date: 20201103
  Serious: Yes (Other)
  Sender: FDA-Public Use
  Company Number: US-ROCHE-2679726

PATIENT
  Sex: Male

DRUGS (14)
  1. CYANOCOBALAMIN. [Concomitant]
     Active Substance: CYANOCOBALAMIN
     Dosage: 100 MCG
     Route: 048
  2. ATROVENT [Concomitant]
     Active Substance: IPRATROPIUM BROMIDE
     Dosage: 0.03 % % SOLUTION
     Route: 045
  3. ESBRIET [Suspect]
     Active Substance: PIRFENIDONE
     Indication: RHINITIS ALLERGIC
  4. ESBRIET [Suspect]
     Active Substance: PIRFENIDONE
     Indication: INSOMNIA
  5. PRADAXA [Concomitant]
     Active Substance: DABIGATRAN ETEXILATE MESYLATE
     Route: 048
  6. RANEXA [Concomitant]
     Active Substance: RANOLAZINE
     Dosage: TWICE DAILY EXTENDED RELEASED TABLET
     Route: 048
  7. ESBRIET [Suspect]
     Active Substance: PIRFENIDONE
     Indication: ATRIAL FIBRILLATION
  8. PANTOPRAZOLE SODIUM. [Concomitant]
     Active Substance: PANTOPRAZOLE SODIUM
  9. LASIX [Concomitant]
     Active Substance: FUROSEMIDE
     Indication: OEDEMA PERIPHERAL
     Dosage: AS NEEDED
     Route: 048
  10. OMEGA 3 [Concomitant]
     Active Substance: OMEGA-3 FATTY ACIDS
     Route: 048
  11. ESBRIET [Suspect]
     Active Substance: PIRFENIDONE
     Indication: OSTEOARTHRITIS
  12. MAGNESIUM [Concomitant]
     Active Substance: MAGNESIUM
     Dosage: TWO TABLETS WITH A MEAL ONCE A DAY
     Route: 048
  13. ESBRIET [Suspect]
     Active Substance: PIRFENIDONE
     Indication: IDIOPATHIC PULMONARY FIBROSIS
     Dosage: TAKE 3 TABLET, 3 TIMES A DAY WITH MEALS?INCREASE ONE TABLET EVERY TWO WEEKS TILL THREE TABLETS THREE
     Route: 048
  14. ESBRIET [Suspect]
     Active Substance: PIRFENIDONE
     Indication: HYPERSENSITIVITY PNEUMONITIS
     Dosage: WITH FOOD
     Route: 048

REACTIONS (1)
  - COVID-19 [Unknown]
